FAERS Safety Report 5833957-2 (Version None)
Quarter: 2008Q3

REPORT INFORMATION
  Report Type: 
  Country: None (occurrence: None)
  Receive Date: 20080801
  Receipt Date: 20080801
  Transmission Date: 20090109
  Serious: Yes (Life-Threatening)
  Sender: FDA-Public Use
  Company Number: None

PATIENT
  Age: 30 Year
  Sex: Female
  Weight: 70.3075 kg

DRUGS (1)
  1. LUNESTA [Suspect]
     Indication: INSOMNIA
     Dosage: 1 TIME PER NIGHT PO
     Route: 048
     Dates: start: 20080525, end: 20080624

REACTIONS (6)
  - DENTAL DISCOMFORT [None]
  - IMPAIRED DRIVING ABILITY [None]
  - ROAD TRAFFIC ACCIDENT [None]
  - SENSITIVITY OF TEETH [None]
  - SOMNOLENCE [None]
  - TEMPERATURE INTOLERANCE [None]
